FAERS Safety Report 5423341-8 (Version None)
Quarter: 2007Q3

REPORT INFORMATION
  Report Type: 
  Country: None (occurrence: None)
  Receive Date: 20070730
  Receipt Date: 20070322
  Transmission Date: 20080115
  Serious: Yes (Hospitalization)
  Sender: FDA-Public Use
  Company Number: 200710487BWH

PATIENT
  Age: 60 Year
  Sex: Female
  Weight: 113.8529 kg

DRUGS (4)
  1. AVELOX [Suspect]
     Indication: BRONCHITIS
     Dosage: 400 MG, QD, ORAL
     Route: 048
     Dates: start: 20070130
  2. MEDROL (METHYLOREDNISOLONE ACETATE) [Concomitant]
  3. PROVENTIL [Concomitant]
  4. SPIRIVA [Concomitant]

REACTIONS (4)
  - HYPERSENSITIVITY [None]
  - HYPOTENSION [None]
  - SWELLING FACE [None]
  - URTICARIA [None]
